FAERS Safety Report 23171160 (Version 1)
Quarter: 2023Q4

REPORT INFORMATION
  Report Type: Spontaneous
  Country: US (occurrence: None)
  Receive Date: 20231110
  Receipt Date: 20231110
  Transmission Date: 20240110
  Serious: No
  Sender: FDA-Public Use
  Company Number: None

PATIENT
  Sex: Male
  Weight: 48.9 kg

DRUGS (7)
  1. CYCLOPHOSPHAMIDE [Suspect]
     Active Substance: CYCLOPHOSPHAMIDE
  2. CYTARABINE [Concomitant]
  3. DEXAMETHASONE [Concomitant]
  4. DOXORBUBICIN HYDROCHLORIDE [Concomitant]
  5. METHOTREXATE [Concomitant]
  6. PONATINIB HYDROCHLORIDE [Concomitant]
  7. VINCRISTINE SULFATE [Concomitant]

REACTIONS (2)
  - Syncope [None]
  - Nausea [None]

NARRATIVE: CASE EVENT DATE: 20231106
